FAERS Safety Report 9882464 (Version 5)
Quarter: 2014Q4

REPORT INFORMATION
  Report Type: Report from Study
  Country: US (occurrence: US)
  Receive Date: 20140207
  Receipt Date: 20141224
  Transmission Date: 20150529
  Serious: Yes (Other)
  Sender: FDA-Public Use
  Company Number: US-ALEXION-A201304910

PATIENT

DRUGS (2)
  1. SOLIRIS [Suspect]
     Active Substance: ECULIZUMAB
     Indication: HAEMOLYTIC URAEMIC SYNDROME
     Dosage: 600 MG, QW
     Route: 042
     Dates: start: 20130526, end: 20141212
  2. CIPROFLOXACIN. [Concomitant]
     Active Substance: CIPROFLOXACIN
     Indication: ANTIBIOTIC THERAPY
     Dosage: UNK, BID
     Route: 065
     Dates: start: 20130525

REACTIONS (4)
  - Blood lactate dehydrogenase increased [Unknown]
  - Hypertension [Unknown]
  - Thrombotic microangiopathy [Unknown]
  - Platelet count decreased [Unknown]
